FAERS Safety Report 4666547-8 (Version None)
Quarter: 2005Q2

REPORT INFORMATION
  Report Type: 
  Country: None (occurrence: None)
  Receive Date: 20050519
  Receipt Date: 20050426
  Transmission Date: 20051028
  Serious: Yes (Hospitalization)
  Sender: FDA-Public Use
  Company Number: US-SANOFI-SYNTHELABO-D01200503130

PATIENT
  Sex: Female
  Weight: 70.5 kg

DRUGS (26)
  1. OXALIPLATIN [Suspect]
     Route: 042
     Dates: start: 20050420, end: 20050420
  2. OXALIPLATIN [Suspect]
     Indication: BILE DUCT CANCER
     Route: 042
     Dates: start: 20050420, end: 20050420
  3. FLUOROURACIL [Suspect]
     Dosage: 400 MG/M2 IV BOLUS FOLLOWED BY 600 MG/M2 IV CONTINUOUS INFUSION, D1-D2, Q2W
     Route: 042
     Dates: start: 20050420, end: 20050420
  4. LEUCOVORIN CALCIUM [Suspect]
     Route: 042
     Dates: start: 20050420, end: 20050420
  5. COUMADIN [Concomitant]
     Indication: ANTICOAGULANT THERAPY
     Dosage: UNK
     Route: 065
     Dates: start: 20000601
  6. METOPROLOL [Concomitant]
     Dosage: UNK
     Route: 065
     Dates: start: 20000601
  7. AMIODARONE HCL [Concomitant]
     Dosage: UNK
     Route: 065
     Dates: start: 20000601
  8. COMPAZINE [Concomitant]
     Dosage: UNK
     Route: 065
     Dates: start: 20050302
  9. ALOXI [Concomitant]
     Dosage: UNK
     Route: 065
     Dates: start: 20050302, end: 20050302
  10. ALOXI [Concomitant]
     Dosage: UNK
     Route: 065
     Dates: start: 20050316, end: 20050316
  11. ALOXI [Concomitant]
     Dosage: UNK
     Route: 065
     Dates: start: 20050406, end: 20050406
  12. ALOXI [Concomitant]
     Dosage: UNK
     Route: 065
     Dates: start: 20050420, end: 20050420
  13. DEXAMETHASONE [Concomitant]
     Dosage: UNK
     Route: 065
     Dates: start: 20050302, end: 20050302
  14. DEXAMETHASONE [Concomitant]
     Dosage: UNK
     Route: 065
     Dates: start: 20050406, end: 20050406
  15. DEXAMETHASONE [Concomitant]
     Dosage: UNK
     Route: 065
     Dates: start: 20050420, end: 20050420
  16. DEXAMETHASONE [Concomitant]
     Dosage: UNK
     Route: 065
     Dates: start: 20050316, end: 20050316
  17. EPOGEN [Concomitant]
     Dosage: UNK
     Route: 065
     Dates: start: 20050318, end: 20050318
  18. EPOGEN [Concomitant]
     Dosage: UNK
     Route: 065
     Dates: start: 20050406, end: 20050406
  19. EPOGEN [Concomitant]
     Dosage: UNK
     Route: 065
     Dates: start: 20050420, end: 20050420
  20. SYNTHROID [Concomitant]
     Dosage: UNK
     Route: 065
     Dates: start: 20010101
  21. TYLENOL (CAPLET) [Concomitant]
     Dosage: UNK
     Route: 065
     Dates: start: 20041201
  22. ATIVAN [Concomitant]
     Dosage: UNK
     Route: 065
     Dates: start: 20050302
  23. IMODIUM [Concomitant]
     Dosage: UNK
     Route: 065
     Dates: start: 20050305
  24. VICODIN [Concomitant]
     Dosage: UNK
     Route: 065
     Dates: start: 20050307
  25. PHENERGAN [Concomitant]
     Dosage: UNK
     Route: 065
     Dates: start: 20050316
  26. K-DUR 10 [Concomitant]
     Dosage: UNK
     Route: 065
     Dates: start: 20050406

REACTIONS (11)
  - BACK PAIN [None]
  - BLOOD PRESSURE SYSTOLIC INCREASED [None]
  - DEPRESSED LEVEL OF CONSCIOUSNESS [None]
  - HAEMORRHAGE [None]
  - METASTASIS [None]
  - NAUSEA [None]
  - NERVOUS SYSTEM DISORDER [None]
  - NEUTROPENIA [None]
  - PUPILS UNEQUAL [None]
  - SUBDURAL HAEMATOMA [None]
  - VOMITING [None]
